FAERS Safety Report 19009729 (Version 3)
Quarter: 2023Q2

REPORT INFORMATION
  Report Type: Spontaneous
  Country: JP (occurrence: JP)
  Receive Date: 20210315
  Receipt Date: 20230607
  Transmission Date: 20230722
  Serious: Yes (Other)
  Sender: FDA-Public Use
  Company Number: JP-DSJP-DSJ-2021-106802

PATIENT
  Sex: Female

DRUGS (2)
  1. DENOSUMAB [Suspect]
     Active Substance: DENOSUMAB
     Indication: Product used for unknown indication
     Dosage: 60 MG, ONCE EVERY 6 MO
     Route: 065
     Dates: start: 202010
  2. CALCIUM CARBONATE\CHOLECALCIFEROL\MAGNESIUM CARBONATE [Suspect]
     Active Substance: CALCIUM CARBONATE\CHOLECALCIFEROL\MAGNESIUM CARBONATE
     Indication: Product used for unknown indication
     Dosage: UNK
     Route: 048

REACTIONS (9)
  - Fungal rhinitis [Unknown]
  - Nasal operation [Not Recovered/Not Resolved]
  - Dental care [Not Recovered/Not Resolved]
  - Impaired healing [Not Recovered/Not Resolved]
  - Pain in jaw [Not Recovered/Not Resolved]
  - Toothache [Not Recovered/Not Resolved]
  - Tooth extraction [Not Recovered/Not Resolved]
  - Procedural pain [Not Recovered/Not Resolved]
  - Off label use [Unknown]
